FAERS Safety Report 5200894-6 (Version None)
Quarter: 2007Q1

REPORT INFORMATION
  Report Type: 
  Country: None (occurrence: None)
  Receive Date: 20070108
  Receipt Date: 20061226
  Transmission Date: 20070707
  Serious: Yes (Life-Threatening, Hospitalization)
  Sender: FDA-Public Use
  Company Number: HQWYE558904OCT06

PATIENT
  Sex: Male

DRUGS (8)
  1. ENBREL [Suspect]
     Indication: RHEUMATOID ARTHRITIS
     Route: 058
     Dates: start: 20060124
  2. PREDONINE [Suspect]
     Indication: RHEUMATOID ARTHRITIS
     Route: 048
     Dates: start: 20020201, end: 20050120
  3. PREDONINE [Suspect]
     Route: 045
     Dates: start: 20050124
  4. TACROLIMUS [Suspect]
     Indication: RHEUMATOID ARTHRITIS
     Route: 048
     Dates: start: 20060602, end: 20060824
  5. FLOMOX [Concomitant]
     Indication: PYREXIA
     Route: 048
  6. BONALON [Concomitant]
     Indication: OSTEOPOROSIS
     Route: 048
     Dates: end: 20060824
  7. PENTCILLIN [Concomitant]
     Indication: PYREXIA
     Route: 042
     Dates: start: 20060818, end: 20060818
  8. MINOCYCLINE HCL [Concomitant]
     Indication: RHEUMATOID ARTHRITIS
     Route: 048
     Dates: end: 20060606

REACTIONS (1)
  - SPONDYLOARTHROPATHY [None]
